FAERS Safety Report 4740305-8 (Version None)
Quarter: 2005Q3

REPORT INFORMATION
  Report Type: 
  Country: None (occurrence: None)
  Receive Date: 20050809
  Receipt Date: 20050809
  Transmission Date: 20060218
  Serious: Yes (Hospitalization, Other)
  Sender: FDA-Public Use
  Company Number: None

PATIENT
  Age: 44 Year
  Sex: Male
  Weight: 62.4 kg

DRUGS (3)
  1. RECOMBINATE [Suspect]
     Indication: FACTOR VIII DEFICIENCY
     Dosage: 4 U/KG/HR CONTINUES INTRAVENOUS
     Route: 042
     Dates: start: 20050610, end: 20050613
  2. RECOMBINATE [Suspect]
  3. RECOMBINATE FACTOR VIII [Concomitant]

REACTIONS (2)
  - HAEMATOMA [None]
  - SOFT TISSUE HAEMORRHAGE [None]
